FAERS Safety Report 8452200-1 (Version None)
Quarter: 2012Q2

REPORT INFORMATION
  Report Type: 
  Country: None (occurrence: None)
  Receive Date: 20120620
  Receipt Date: 20120511
  Transmission Date: 20120825
  Serious: No
  Sender: FDA-Public Use
  Company Number: US-ASTRAZENECA-2010SE29533

PATIENT
  Age: 55 Year
  Sex: Female
  Weight: 63.5 kg

DRUGS (21)
  1. CRESTOR [Suspect]
     Route: 048
  2. SOLOSTAR [Concomitant]
     Indication: DIABETES MELLITUS
  3. LANTUS [Concomitant]
     Indication: DIABETES MELLITUS
  4. DEPAKOTE [Concomitant]
  5. SEROQUEL XR [Suspect]
     Indication: AFFECTIVE DISORDER
     Route: 048
     Dates: start: 20060101, end: 20090101
  6. RAMAPIL [Concomitant]
  7. LIPITOR [Concomitant]
  8. SEROQUEL XR [Suspect]
     Route: 048
     Dates: start: 20090101, end: 20100601
  9. SEROQUEL XR [Suspect]
     Route: 048
     Dates: start: 20100601
  10. GENUVIA [Concomitant]
  11. SEROQUEL XR [Suspect]
     Indication: BIPOLAR DISORDER
     Route: 048
     Dates: start: 20060101, end: 20090101
  12. SEROQUEL XR [Suspect]
     Indication: SLEEP DISORDER
     Route: 048
     Dates: start: 20060101, end: 20090101
  13. SEROQUEL XR [Suspect]
     Route: 048
     Dates: start: 20090101, end: 20100601
  14. SEROQUEL XR [Suspect]
     Route: 048
     Dates: start: 20100601
  15. SEROQUEL XR [Suspect]
     Route: 048
     Dates: start: 20100601
  16. PRISTIQ [Concomitant]
  17. TOPAMAX [Concomitant]
  18. SEROQUEL XR [Suspect]
     Route: 048
     Dates: start: 20090101, end: 20100601
  19. GLUCOMETZA [Concomitant]
     Indication: DIABETES MELLITUS
  20. ATENOLOL [Concomitant]
     Indication: PALPITATIONS
  21. PROTONIX [Concomitant]
     Indication: GASTROOESOPHAGEAL REFLUX DISEASE

REACTIONS (6)
  - SOMNOLENCE [None]
  - HYPOTENSION [None]
  - DIABETES MELLITUS [None]
  - FALL [None]
  - DIZZINESS [None]
  - TREMOR [None]
